FAERS Safety Report 15576811 (Version 1)
Quarter: 2018Q4

REPORT INFORMATION
  Report Type: Spontaneous
  Country: EG (occurrence: EG)
  Receive Date: 20181101
  Receipt Date: 20181101
  Transmission Date: 20190205
  Serious: Yes (Other)
  Sender: FDA-Public Use
  Company Number: EG-GLAXOSMITHKLINE-EG2018067417

PATIENT

DRUGS (1)
  1. CATAFLAM [Suspect]
     Active Substance: DICLOFENAC POTASSIUM
     Indication: PAIN
     Dosage: UNK
     Route: 065

REACTIONS (3)
  - Respiratory distress [Recovering/Resolving]
  - Cough [Unknown]
  - Miosis [Recovered/Resolved]

NARRATIVE: CASE EVENT DATE: 20180401
